FAERS Safety Report 5218348-X (Version None)
Quarter: 2007Q1

REPORT INFORMATION
  Report Type: 
  Country: None (occurrence: None)
  Receive Date: 20061201
  Receipt Date: 20060329
  Transmission Date: 20070707
  Serious: Yes (Other)
  Sender: FDA-Public Use
  Company Number: PHEH2006US03333

PATIENT
  Age: 68 Year
  Sex: Male

DRUGS (9)
  1. LAMISIL [Suspect]
     Indication: NAIL TINEA
     Dosage: 250 MG, QD, ORAL
     Route: 048
     Dates: start: 20040101, end: 20040301
  2. LISINOPRIL [Concomitant]
  3. TRIAMTERENE (TRIAMTERENE) [Concomitant]
  4. BENICAR [Concomitant]
  5. TOPROL-XL [Concomitant]
  6. NORVASC [Concomitant]
  7. PRAVACHOL [Concomitant]
  8. ZETIA [Concomitant]
  9. ASPIRIN [Concomitant]

REACTIONS (6)
  - DERMATITIS [None]
  - DERMATITIS PSORIASIFORM [None]
  - HYPERHIDROSIS [None]
  - OEDEMA PERIPHERAL [None]
  - RASH GENERALISED [None]
  - SKIN LESION [None]
